FAERS Safety Report 16959895 (Version 1)
Quarter: 2019Q4

REPORT INFORMATION
  Report Type: Spontaneous
  Country: CZ (occurrence: CZ)
  Receive Date: 20191025
  Receipt Date: 20191025
  Transmission Date: 20200122
  Serious: Yes (Other)
  Sender: FDA-Public Use
  Company Number: CZ-TEVA-2019-CZ-1126235

PATIENT
  Age: 61 Year
  Sex: Male

DRUGS (2)
  1. VINCRISTINE [Suspect]
     Active Substance: VINCRISTINE
     Indication: MANTLE CELL LYMPHOMA
     Dosage: 8 CYCLES IN R-CHOP REGIMEN
     Route: 042
     Dates: start: 201006
  2. DOXORUBICIN [Suspect]
     Active Substance: DOXORUBICIN
     Indication: MANTLE CELL LYMPHOMA
     Dosage: 8 CYCLES IN R-CHOP REGIMEN
     Route: 042
     Dates: start: 201006

REACTIONS (4)
  - Respiratory tract infection [Recovered/Resolved]
  - Gallstone ileus [Recovered/Resolved]
  - Pneumonia [Recovered/Resolved]
  - Pleurisy [Recovered/Resolved]

NARRATIVE: CASE EVENT DATE: 2010
